FAERS Safety Report 22519558 (Version 1)
Quarter: 2023Q2

REPORT INFORMATION
  Report Type: Spontaneous
  Country: US (occurrence: None)
  Receive Date: 20230601
  Receipt Date: 20230601
  Transmission Date: 20230721
  Serious: Yes (Hospitalization)
  Sender: FDA-Public Use
  Company Number: None

PATIENT
  Sex: Female

DRUGS (1)
  1. TALTZ [Suspect]
     Active Substance: IXEKIZUMAB
     Indication: Psoriasis
     Dates: start: 202305

REACTIONS (8)
  - Abdominal pain upper [None]
  - Injection site inflammation [None]
  - Swelling face [None]
  - Eye swelling [None]
  - Vomiting [None]
  - Diarrhoea [None]
  - Pain [None]
  - Nausea [None]
